FAERS Safety Report 8709287 (Version 2)
Quarter: 2012Q4

REPORT INFORMATION
  Report Type: 
  Country: US (occurrence: US)
  Receive Date: 20120806
  Receipt Date: 20120829
  Transmission Date: 20130627
  Serious: Yes (Other)
  Sender: FDA-Public Use
  Company Number: US-ASTRAZENECA-2012SE53428

PATIENT
  Age: 25 Year
  Sex: Female

DRUGS (2)
  1. SYMBICORT [Suspect]
     Route: 055
  2. NEXIUM [Suspect]
     Route: 048

REACTIONS (7)
  - Hypoglycaemia [Unknown]
  - Loss of consciousness [Unknown]
  - Bronchospasm [Unknown]
  - Dyspepsia [Unknown]
  - Oesophageal food impaction [Unknown]
  - Decreased appetite [Unknown]
  - Drug dose omission [Unknown]
